FAERS Safety Report 16011543 (Version 1)
Quarter: 2019Q1

REPORT INFORMATION
  Report Type: Spontaneous
  Country: US (occurrence: US)
  Receive Date: 20190227
  Receipt Date: 20190227
  Transmission Date: 20190418
  Serious: No
  Sender: FDA-Public Use
  Company Number: US-PFIZER INC-2019080611

PATIENT
  Sex: Female

DRUGS (1)
  1. IBRANCE [Suspect]
     Active Substance: PALBOCICLIB
     Dosage: 125 MG, CYCLIC(TAKE 1 CAPSULE BY MOUTH DAILY FOR 21 DAYS OUT OF A 28 DAY CYCLE)
     Route: 048
     Dates: start: 20180601

REACTIONS (5)
  - Weight decreased [Unknown]
  - Fall [Unknown]
  - Off label use [Unknown]
  - Decreased appetite [Unknown]
  - Nausea [Recovering/Resolving]

NARRATIVE: CASE EVENT DATE: 2018
